FAERS Safety Report 8916892 (Version 1)
Quarter: 2012Q4

REPORT INFORMATION
  Report Type: 
  Country: US (occurrence: US)
  Receive Date: 20121120
  Receipt Date: 20121120
  Transmission Date: 20130627
  Serious: No
  Sender: FDA-Public Use
  Company Number: US-009507513-1211USA007264

PATIENT
  Sex: Male

DRUGS (3)
  1. RIBAVIRIN [Suspect]
     Indication: HEPATITIS C
     Dosage: UNK
     Dates: start: 20121018
  2. PEGASYS [Suspect]
     Indication: HEPATITIS C
     Dosage: UNK
     Dates: start: 20121018
  3. VICTRELIS [Suspect]
     Indication: HEPATITIS C
     Dosage: UNK
     Dates: start: 20121115

REACTIONS (6)
  - Chest discomfort [Unknown]
  - Dyspnoea [Unknown]
  - Dysgeusia [Unknown]
  - Feeling hot [Unknown]
  - Erythema [Unknown]
  - Unevaluable event [Unknown]
